FAERS Safety Report 9082450 (Version 1)
Quarter: 2013Q1

REPORT INFORMATION
  Report Type: Report from Study
  Country: US (occurrence: US)
  Receive Date: 20130130
  Receipt Date: 20130130
  Transmission Date: 20140127
  Serious: No
  Sender: FDA-Public Use
  Company Number: US-ABBOTT-12P-163-0953133-00

PATIENT
  Age: 42 Year
  Sex: Female

DRUGS (9)
  1. HUMIRA 40 MG/0.8 ML PEN [Suspect]
     Indication: PSORIATIC ARTHROPATHY
     Dates: start: 201205
  2. LISINOPRIL [Concomitant]
     Indication: HYPERTENSION
     Dosage: 20-25 MG, DAILY
  3. ZOLOFT [Concomitant]
     Indication: DEPRESSION
     Dosage: 50MG DAILY
  4. OMEPRAZOLE [Concomitant]
     Indication: PRODUCT USED FOR UNKNOWN INDICATION
     Dosage: UNKNOWN DOSAGE DAILY
  5. LORATADIN [Concomitant]
     Indication: GASTROOESOPHAGEAL REFLUX DISEASE
  6. FOLIC ACID [Concomitant]
     Indication: PRODUCT USED FOR UNKNOWN INDICATION
  7. VITAMIN D3 [Concomitant]
     Indication: PRODUCT USED FOR UNKNOWN INDICATION
     Dosage: 2,000 IU DAILY
  8. MOTRIN [Concomitant]
     Indication: PAIN
     Dosage: 800MG 3-4 TIMES A DAY
  9. SUBUTEX [Concomitant]
     Indication: DRUG DEPENDENCE
     Dosage: 2.5 TABLETS, 1 IN 1 DAY

REACTIONS (4)
  - Oedema [Not Recovered/Not Resolved]
  - Hypoaesthesia [Not Recovered/Not Resolved]
  - Paraesthesia [Not Recovered/Not Resolved]
  - Local swelling [Not Recovered/Not Resolved]
